FAERS Safety Report 5062017-6 (Version None)
Quarter: 2006Q3

REPORT INFORMATION
  Report Type: 
  Country: None (occurrence: None)
  Receive Date: 20060726
  Receipt Date: 20060718
  Transmission Date: 20061208
  Serious: Yes (Hospitalization)
  Sender: FDA-Public Use
  Company Number: 2006PK01555

PATIENT
  Sex: Female

DRUGS (2)
  1. ARIMIDEX [Suspect]
     Indication: BREAST CANCER METASTATIC
     Dates: start: 20050101
  2. ZOMETA [Concomitant]
     Indication: BREAST CANCER METASTATIC

REACTIONS (1)
  - RENAL IMPAIRMENT [None]
